FAERS Safety Report 7079604-6 (Version None)
Quarter: 2010Q4

REPORT INFORMATION
  Report Type: 
  Country: None (occurrence: None)
  Receive Date: 20101102
  Receipt Date: 20101018
  Transmission Date: 20110411
  Serious: Yes (Death, Hospitalization)
  Sender: FDA-Public Use
  Company Number: PHEH2008US11853

PATIENT
  Sex: Female

DRUGS (2)
  1. EXJADE [Suspect]
     Dosage: 500 MG, UNK
  2. ZOSYN [Suspect]
     Dosage: UNK

REACTIONS (20)
  - ACUTE RESPIRATORY DISTRESS SYNDROME [None]
  - ANTIBIOTIC RESISTANT STAPHYLOCOCCUS TEST POSITIVE [None]
  - ASTHENIA [None]
  - CONFUSIONAL STATE [None]
  - DEPRESSED LEVEL OF CONSCIOUSNESS [None]
  - HYPOTENSION [None]
  - HYPOXIA [None]
  - LIVER INJURY [None]
  - MENTAL STATUS CHANGES [None]
  - OLIGURIA [None]
  - PNEUMONIA STAPHYLOCOCCAL [None]
  - PYREXIA [None]
  - RENAL FAILURE [None]
  - RENAL TUBULAR NECROSIS [None]
  - RESPIRATORY FAILURE [None]
  - SEPTIC SHOCK [None]
  - STAPHYLOCOCCAL SEPSIS [None]
  - TACHYCARDIA [None]
  - TACHYPNOEA [None]
  - WHEELCHAIR USER [None]
